FAERS Safety Report 5152259-3 (Version None)
Quarter: 2006Q4

REPORT INFORMATION
  Report Type: 
  Country: None (occurrence: None)
  Receive Date: 20061113
  Receipt Date: 20061113
  Transmission Date: 20070319
  Serious: No
  Sender: FDA-Public Use
  Company Number: None

PATIENT
  Sex: Female

DRUGS (1)
  1. LIDOCAINE 2% W/EPINEPHRINE 1:200000 INJ [Suspect]
     Dosage: 6 CCS 1 SUB CUT
     Route: 058
     Dates: start: 20061019

REACTIONS (1)
  - ANAESTHETIC COMPLICATION [None]
